FAERS Safety Report 8086428-X (Version None)
Quarter: 2012Q1

REPORT INFORMATION
  Report Type: 
  Country: None (occurrence: None)
  Receive Date: 20120128
  Receipt Date: 20110505
  Transmission Date: 20120608
  Serious: No
  Sender: FDA-Public Use
  Company Number: US-ABBOTT-11P-163-0723885-00

PATIENT
  Age: 56 Year
  Sex: Male

DRUGS (1)
  1. HUMIRA [Suspect]
     Indication: POLYCHONDRITIS
     Dates: start: 20090201

REACTIONS (6)
  - INJECTION SITE REACTION [None]
  - COUGH [None]
  - SINUS DISORDER [None]
  - PAIN [None]
  - NASOPHARYNGITIS [None]
  - FEELING ABNORMAL [None]
